FAERS Safety Report 6056623-X (Version None)
Quarter: 2009Q1

REPORT INFORMATION
  Report Type: 
  Country: None (occurrence: None)
  Receive Date: 20090126
  Receipt Date: 20090126
  Transmission Date: 20090719
  Serious: Yes (Life-Threatening, Hospitalization, Disabling)
  Sender: FDA-Public Use
  Company Number: None

PATIENT
  Age: 80 Year
  Sex: Male
  Weight: 79 kg

DRUGS (1)
  1. SIMVASTATIN [Suspect]
     Indication: BLOOD CHOLESTEROL INCREASED
     Dosage: JULY 25 OR 26, 08 TO 8-14 OR 18

REACTIONS (7)
  - ASTHENIA [None]
  - DIALYSIS [None]
  - DYSSTASIA [None]
  - GAIT DISTURBANCE [None]
  - MYALGIA [None]
  - MYOCARDIAL INFARCTION [None]
  - RENAL FAILURE [None]
